FAERS Safety Report 12127810 (Version 2)
Quarter: 2017Q3

REPORT INFORMATION
  Report Type: Spontaneous
  Country: FR (occurrence: FR)
  Receive Date: 20160229
  Receipt Date: 20170717
  Transmission Date: 20171127
  Serious: Yes (Life-Threatening, Hospitalization, Disabling)
  Sender: FDA-Public Use
  Company Number: FR-TEVA-636866ISR

PATIENT
  Sex: Male

DRUGS (6)
  1. SINEMET [Suspect]
     Active Substance: CARBIDOPA\LEVODOPA
     Dosage: 2 DOSAGE FORMS DAILY; LEVODOPA: 100 MG + CARBIDOPA 10 MG. LONG-STANDING TREATMENT
     Route: 048
  2. LEXOMIL ROCHE COMPRIME BAGUETTE [Concomitant]
     Active Substance: BROMAZEPAM
     Dosage: 3 MILLIGRAM DAILY; LONG-STANDING TREATMENT
     Route: 048
  3. IMOVANE [Concomitant]
     Active Substance: ZOPICLONE
     Dosage: 7.5 MILLIGRAM DAILY; ONGOING
     Route: 048
  4. MANTADIX 100 MG [Suspect]
     Active Substance: AMANTADINE HYDROCHLORIDE
     Dosage: 2 DOSAGE FORMS DAILY; LONG-STANDING TREATMENT
     Route: 048
  5. SIFROL LP [Suspect]
     Active Substance: PRAMIPEXOLE
     Dosage: 1.57 MILLIGRAM DAILY; 1.05 MG AND 0.52 MG DAILY IN ONE INTAKE. LONG-STANDING TREATMENT
     Route: 048
  6. AZILECT [Suspect]
     Active Substance: RASAGILINE MESYLATE
     Dosage: 1 DOSAGE FORMS DAILY; LONG-STANDING TREATMENT
     Route: 048
     Dates: end: 20160729

REACTIONS (1)
  - Basal cell carcinoma [Not Recovered/Not Resolved]

NARRATIVE: CASE EVENT DATE: 2014
